FAERS Safety Report 8746191 (Version 2)
Quarter: 2013Q1

REPORT INFORMATION
  Report Type: Spontaneous
  Country: BR (occurrence: BR)
  Receive Date: 20120827
  Receipt Date: 20130111
  Transmission Date: 20140127
  Serious: Yes (Death, Other)
  Sender: FDA-Public Use
  Company Number: PHHY2012BR073274

PATIENT
  Sex: Male
  Weight: 48 kg

DRUGS (1)
  1. FORASEQ [Suspect]
     Indication: EMPHYSEMA
     Dosage: 1 DF, (1 INHALATION OF EACH TREATMENT TWICE DAILY)

REACTIONS (5)
  - Emphysema [Fatal]
  - Inspiratory capacity decreased [Fatal]
  - Bladder cancer [Fatal]
  - Blood urine present [Fatal]
  - Femur fracture [Fatal]
